FAERS Safety Report 24540522 (Version 1)
Quarter: 2024Q4

REPORT INFORMATION
  Report Type: Spontaneous
  Country: US (occurrence: None)
  Receive Date: 20241023
  Receipt Date: 20241023
  Transmission Date: 20250114
  Serious: No
  Sender: Public
  Company Number: None

PATIENT
  Age: 77 Year
  Sex: Female
  Weight: 73.94 kg

DRUGS (1)
  1. DULOXETINE [Suspect]
     Active Substance: DULOXETINE
     Indication: Fibromyalgia
     Dosage: OTHER FREQUENCY : 1CAPSULE EVERY DAY FOR 14 DAYS, THEN INCREASE TID ;?
     Route: 048
     Dates: start: 20240927, end: 20240930

REACTIONS (3)
  - Muscular weakness [None]
  - Muscular weakness [None]
  - Dysstasia [None]

NARRATIVE: CASE EVENT DATE: 20240927
